FAERS Safety Report 25375323 (Version 1)
Quarter: 2025Q2

REPORT INFORMATION
  Report Type: Spontaneous
  Country: JP (occurrence: JP)
  Receive Date: 20250529
  Receipt Date: 20250529
  Transmission Date: 20250717
  Serious: Yes (Other)
  Sender: AURINIA PHARMACEUTICALS
  Company Number: JP-MMM-Otsuka-9B7KLF02

PATIENT

DRUGS (2)
  1. LUPKYNIS [Suspect]
     Active Substance: VOCLOSPORIN
     Indication: Product used for unknown indication
     Dosage: 47.4 MILLIGRAM, QD
     Route: 048
  2. LUPKYNIS [Suspect]
     Active Substance: VOCLOSPORIN
     Dosage: 31.6 MILLIGRAM, QD
     Route: 048

REACTIONS (3)
  - Gastrointestinal oedema [Unknown]
  - Enterocolitis [Unknown]
  - Diarrhoea [Recovering/Resolving]

NARRATIVE: CASE EVENT DATE: 20250428
